FAERS Safety Report 12944240 (Version 2)
Quarter: 2016Q4

REPORT INFORMATION
  Report Type: Spontaneous
  Country: NL (occurrence: NL)
  Receive Date: 20161115
  Receipt Date: 20161214
  Transmission Date: 20170207
  Serious: Yes (Death, Other)
  Sender: FDA-Public Use
  Company Number: NL-TOLMAR, INC.-2016NL012041

PATIENT
  Sex: Male

DRUGS (3)
  1. ELIGARD [Suspect]
     Active Substance: LEUPROLIDE ACETATE
     Dosage: 45 MG, PER 6 MONTHS
     Route: 058
     Dates: start: 20160902
  2. ELIGARD [Suspect]
     Active Substance: LEUPROLIDE ACETATE
     Dosage: 45 MG, PER 6 MONTHS
     Route: 058
     Dates: start: 20160302
  3. ELIGARD [Suspect]
     Active Substance: LEUPROLIDE ACETATE
     Indication: PROSTATE CANCER
     Dosage: 45 MG, PER 6 MONTHS
     Route: 058
     Dates: start: 20130404

REACTIONS (2)
  - Hormone-refractory prostate cancer [Fatal]
  - Terminal state [Unknown]
